FAERS Safety Report 20224595 (Version 1)
Quarter: 2021Q4

REPORT INFORMATION
  Report Type: Spontaneous
  Country: US (occurrence: US)
  Receive Date: 20211223
  Receipt Date: 20211223
  Transmission Date: 20220303
  Serious: Yes (Other)
  Sender: FDA-Public Use
  Company Number: US-BAYER-2021A269830

PATIENT
  Sex: Male

DRUGS (6)
  1. XOFIGO [Suspect]
     Active Substance: RADIUM RA-223 DICHLORIDE
     Dosage: UNK
     Dates: start: 2004, end: 2004
  2. KETOKONAZOLE HASCO [Concomitant]
     Dosage: UNK
     Dates: start: 200609
  3. VIVELLE [Concomitant]
     Active Substance: ESTRADIOL
     Dosage: UNK
     Dates: start: 200609
  4. AVODART [Concomitant]
     Active Substance: DUTASTERIDE
     Dosage: UNK
     Dates: start: 200609
  5. ZOMETA [Concomitant]
     Active Substance: ZOLEDRONIC ACID
     Dosage: UNK
  6. XTANDI [Concomitant]
     Active Substance: ENZALUTAMIDE
     Dosage: UNK
     Dates: start: 2004

REACTIONS (2)
  - Metastases to central nervous system [None]
  - Metastases to bone [None]
